FAERS Safety Report 5711237-3 (Version None)
Quarter: 2008Q2

REPORT INFORMATION
  Report Type: 
  Country: None (occurrence: None)
  Receive Date: 20080414
  Receipt Date: 20080404
  Transmission Date: 20081010
  Serious: Yes (Other)
  Sender: FDA-Public Use
  Company Number: 2008SP005255

PATIENT
  Age: 47 Year
  Sex: Male
  Weight: 121 kg

DRUGS (3)
  1. PEGINTERFERON ALFA-2B (S-P) (PEGINTERFERON ALFA-2B) [Suspect]
     Indication: HEPATITIS C
     Dosage: 150 MCG;QW;SC
     Route: 058
     Dates: start: 20080116, end: 20080312
  2. RIBAVIRIN [Suspect]
     Indication: HEPATITIS C
     Dosage: 1200 MG; QD; PO
     Route: 048
     Dates: start: 20080116, end: 20080312
  3. ENALAPRIL [Concomitant]

REACTIONS (3)
  - COOMBS POSITIVE HAEMOLYTIC ANAEMIA [None]
  - SUPRAVENTRICULAR TACHYCARDIA [None]
  - SYNCOPE VASOVAGAL [None]
